FAERS Safety Report 4916839-X (Version None)
Quarter: 2006Q1

REPORT INFORMATION
  Report Type: 
  Country: None (occurrence: None)
  Receive Date: 20060216
  Receipt Date: 20060216
  Transmission Date: 20060701
  Serious: Yes (Other)
  Sender: FDA-Public Use
  Company Number: None

PATIENT
  Sex: Female

DRUGS (3)
  1. MISOPROSTOL [Suspect]
     Indication: PROPHYLAXIS
     Dosage: 200 MG 3X DAILY PO
     Route: 048
     Dates: start: 20030628, end: 20030630
  2. MISOPROSTOL [Suspect]
     Indication: ULCER
     Dosage: 200 MG 3X DAILY PO
     Route: 048
     Dates: start: 20030628, end: 20030630
  3. . [Concomitant]

REACTIONS (4)
  - ABDOMINAL PAIN [None]
  - PHARMACEUTICAL PRODUCT COMPLAINT [None]
  - RASH GENERALISED [None]
  - RASH PRURITIC [None]
